FAERS Safety Report 8013572-5 (Version None)
Quarter: 2011Q4

REPORT INFORMATION
  Report Type: 
  Country: None (occurrence: None)
  Receive Date: 20111229
  Receipt Date: 20111221
  Transmission Date: 20120403
  Serious: Yes (Other)
  Sender: FDA-Public Use
  Company Number: BR-ASTRAZENECA-2011SE77956

PATIENT
  Age: 73 Year
  Sex: Female
  Weight: 68 kg

DRUGS (3)
  1. ATACAND [Suspect]
     Indication: HYPERTENSION
     Route: 048
     Dates: start: 20030101, end: 20111101
  2. INDAPEN [Concomitant]
     Indication: DIURETIC THERAPY
     Route: 048
     Dates: start: 20111101
  3. UNKNOWN [Concomitant]
     Indication: INFLUENZA
     Route: 048

REACTIONS (3)
  - INFLUENZA [None]
  - DRUG INEFFECTIVE [None]
  - BLOOD PRESSURE INCREASED [None]
